FAERS Safety Report 9349905 (Version 2)
Quarter: 2013Q2

REPORT INFORMATION
  Report Type: Spontaneous
  Country: ES (occurrence: ES)
  Receive Date: 20130614
  Receipt Date: 20130627
  Transmission Date: 20140414
  Serious: Yes (Hospitalization)
  Sender: FDA-Public Use
  Company Number: PHHY2013ES058520

PATIENT
  Age: 32 Year
  Sex: Male

DRUGS (9)
  1. OXAZEPAM [Suspect]
     Route: 048
  2. METOCLOPRAMIDE [Suspect]
     Route: 048
  3. IBUPROFEN [Suspect]
     Route: 048
  4. DIPYRONE [Suspect]
     Dosage: 650 MG
     Route: 048
  5. DIMETICONE [Suspect]
     Route: 048
  6. ISPAGHULA [Suspect]
     Route: 048
  7. HYPERICUM EXTRACT [Suspect]
     Route: 048
  8. PASSIFLORA INCARNATA [Suspect]
     Route: 048
  9. ACETAMINOPHEN (PARACETAMOL), CODEINE PHOSPHATE [Suspect]
     Indication: ANALGESIC THERAPY
     Dosage: 500 MG, UNK

REACTIONS (14)
  - Drug reaction with eosinophilia and systemic symptoms [Recovering/Resolving]
  - Pyrexia [Recovering/Resolving]
  - Acute generalised exanthematous pustulosis [Recovering/Resolving]
  - Arthralgia [Recovering/Resolving]
  - Myalgia [Recovering/Resolving]
  - Rash erythematous [Recovering/Resolving]
  - Oedema peripheral [Recovering/Resolving]
  - Hepatic failure [Recovering/Resolving]
  - Hepatomegaly [Recovering/Resolving]
  - Jaundice [Recovering/Resolving]
  - Ascites [Recovering/Resolving]
  - Choluria [Recovering/Resolving]
  - Abdominal pain [Recovering/Resolving]
  - Diarrhoea [Recovering/Resolving]
